FAERS Safety Report 5532064-6 (Version None)
Quarter: 2007Q4

REPORT INFORMATION
  Report Type: 
  Country: None (occurrence: None)
  Receive Date: 20071203
  Receipt Date: 20071122
  Transmission Date: 20080405
  Serious: Yes (Hospitalization, Other)
  Sender: FDA-Public Use
  Company Number: B0496759A

PATIENT
  Age: 69 Year
  Sex: Female

DRUGS (3)
  1. LAMICTAL [Suspect]
     Indication: BIPOLAR DISORDER
     Route: 048
     Dates: start: 20070228, end: 20070912
  2. ELECTROCONVULSIVE THERAPY [Suspect]
  3. ATARAX [Concomitant]
     Indication: INSOMNIA
     Dosage: 25MG PER DAY
     Route: 048

REACTIONS (6)
  - BALANCE DISORDER [None]
  - CEREBELLAR SYNDROME [None]
  - CONFUSIONAL STATE [None]
  - FALL [None]
  - HALLUCINATION, AUDITORY [None]
  - HALLUCINATION, VISUAL [None]
